FAERS Safety Report 17041306 (Version 2)
Quarter: 2020Q1

REPORT INFORMATION
  Report Type: Report from Study
  Country: US (occurrence: US)
  Receive Date: 20191118
  Receipt Date: 20200106
  Transmission Date: 20200409
  Serious: Yes (Hospitalization)
  Sender: FDA-Public Use
  Company Number: US-SHIRE-US201939305

PATIENT
  Age: 20 Year
  Sex: Female
  Weight: 49.98 kg

DRUGS (2)
  1. TEDUGLUTIDE [Suspect]
     Active Substance: TEDUGLUTIDE
     Dosage: 0.125 MILLIGRAM, 1X/DAY:QD
     Route: 065
  2. TEDUGLUTIDE [Suspect]
     Active Substance: TEDUGLUTIDE
     Indication: MALABSORPTION
     Dosage: 0.2500 (UNIT UNKNOWN) 1X/DAY:QD
     Route: 058
     Dates: start: 20180905

REACTIONS (4)
  - Hospitalisation [Unknown]
  - Malaise [Recovered/Resolved]
  - Intentional product use issue [Unknown]
  - Inappropriate schedule of product administration [Recovered/Resolved]

NARRATIVE: CASE EVENT DATE: 20191028
